FAERS Safety Report 6151041-8 (Version None)
Quarter: 2009Q2

REPORT INFORMATION
  Report Type: 
  Country: None (occurrence: None)
  Receive Date: 20090410
  Receipt Date: 20090325
  Transmission Date: 20091009
  Serious: No
  Sender: FDA-Public Use
  Company Number: A0772792A

PATIENT
  Age: 62 Year
  Sex: Female

DRUGS (8)
  1. TYKERB [Suspect]
     Indication: BREAST CANCER
     Dosage: 1250MG PER DAY
     Route: 048
  2. COMPAZINE [Concomitant]
  3. MORPHINE [Concomitant]
  4. CYMBALTA [Concomitant]
  5. NEURONTIN [Concomitant]
  6. LASIX [Concomitant]
  7. LEXAPRO [Concomitant]
  8. M.V.I. [Concomitant]

REACTIONS (1)
  - DYSPHAGIA [None]
